FAERS Safety Report 14060700 (Version 1)
Quarter: 2017Q4

REPORT INFORMATION
  Report Type: Spontaneous
  Country: FR (occurrence: FR)
  Receive Date: 20171007
  Receipt Date: 20171007
  Transmission Date: 20180321
  Serious: Yes (Other)
  Sender: FDA-Public Use
  Company Number: FR-AUROBINDO-AUR-APL-2017-41277

PATIENT
  Age: 25 Year
  Sex: Male

DRUGS (2)
  1. LEVETIRACETAM MYLAN [Suspect]
     Active Substance: LEVETIRACETAM
     Indication: EPILEPSY
     Dosage: 500 MG, TWO TIMES A DAY
     Route: 048
     Dates: start: 20170814, end: 20170904
  2. LEVETIRACETAM ARROW LAB 1000 MG FILM COATED TABLETS [Suspect]
     Active Substance: LEVETIRACETAM
     Indication: EPILEPSY
     Dosage: 1000 MG, TWO TIMES A DAY
     Route: 048
     Dates: start: 20170814, end: 20170904

REACTIONS (2)
  - Epilepsy [Recovered/Resolved]
  - Therapeutic response changed [Recovered/Resolved]

NARRATIVE: CASE EVENT DATE: 20170815
